FAERS Safety Report 4805732-9 (Version None)
Quarter: 2005Q4

REPORT INFORMATION
  Report Type: 
  Country: None (occurrence: None)
  Receive Date: 20051021
  Receipt Date: 20050715
  Transmission Date: 20060501
  Serious: Yes (Life-Threatening, Hospitalization, Other)
  Sender: FDA-Public Use
  Company Number: PHNU2005DE02567

PATIENT
  Age: 77 Year
  Sex: Female
  Weight: 81 kg

DRUGS (1)
  1. LOCOL [Suspect]
     Indication: HYPERCHOLESTEROLAEMIA
     Dosage: 80 MG, QD
     Route: 048
     Dates: start: 20050225, end: 20050325

REACTIONS (5)
  - DIABETES MELLITUS [None]
  - FOLLICULITIS [None]
  - LOCAL SWELLING [None]
  - PRURITUS [None]
  - RENAL FAILURE ACUTE [None]
